FAERS Safety Report 9662845 (Version 2)
Quarter: 2013Q4

REPORT INFORMATION
  Report Type: Spontaneous
  Country: US (occurrence: US)
  Receive Date: 20131031
  Receipt Date: 20131031
  Transmission Date: 20140711
  Serious: No
  Sender: FDA-Public Use
  Company Number: US-PURDUE-USA-2010-0047796

PATIENT
  Age: 51 Year
  Sex: Female

DRUGS (4)
  1. OXYCONTIN (NDA 22-272) [Suspect]
     Indication: PAIN
     Dosage: 30 MG, TID
     Dates: start: 20100830
  2. OXYCONTIN (NDA 22-272) [Suspect]
     Dosage: 20 MG, UNK
     Dates: start: 201012
  3. OXYCONTIN (NDA 22-272) [Suspect]
     Dosage: 40 MG, UNK
     Dates: start: 201012
  4. PERCOCET                           /00867901/ [Concomitant]
     Indication: BREAKTHROUGH PAIN
     Dosage: 5 MG, TID

REACTIONS (9)
  - Skin exfoliation [Unknown]
  - Pain [Unknown]
  - Inadequate analgesia [Unknown]
  - Drug effect delayed [Unknown]
  - Drug ineffective [Unknown]
  - Rash [Unknown]
  - Nausea [Unknown]
  - Headache [Unknown]
  - Malaise [Unknown]
